FAERS Safety Report 9517764 (Version 2)
Quarter: 2013Q4

REPORT INFORMATION
  Report Type: Spontaneous
  Country: US (occurrence: US)
  Receive Date: 20130912
  Receipt Date: 20131022
  Transmission Date: 20140711
  Serious: Yes (Hospitalization, Other)
  Sender: FDA-Public Use
  Company Number: US-AMGEN-USASP2013062551

PATIENT
  Age: 70 Year
  Sex: Female

DRUGS (7)
  1. ARANESP [Suspect]
     Indication: RED BLOOD CELL COUNT DECREASED
     Dosage: UNK UNK, QMO
     Route: 065
  2. ADVAIR [Suspect]
     Indication: CHRONIC OBSTRUCTIVE PULMONARY DISEASE
     Route: 065
  3. SPIRIVA [Suspect]
     Indication: PRODUCT USED FOR UNKNOWN INDICATION
     Route: 065
  4. VENTOLIN [Suspect]
     Indication: PRODUCT USED FOR UNKNOWN INDICATION
     Route: 065
  5. ALBUTEROL [Suspect]
     Indication: CHRONIC OBSTRUCTIVE PULMONARY DISEASE
     Route: 065
  6. OXYGEN [Concomitant]
  7. CHEMOTHERAPEUTICS [Concomitant]

REACTIONS (23)
  - Cardiac disorder [Unknown]
  - Chronic obstructive pulmonary disease [Unknown]
  - Cataract [Unknown]
  - Neoplasm malignant [Unknown]
  - Bronchitis [Unknown]
  - Renal cancer [Unknown]
  - Atrial fibrillation [Unknown]
  - Heart rate increased [Unknown]
  - Feeling abnormal [Unknown]
  - Asthenia [Unknown]
  - Malaise [Unknown]
  - Stomatitis [Unknown]
  - Oral pain [Unknown]
  - Diarrhoea [Unknown]
  - Nail ridging [Unknown]
  - Memory impairment [Unknown]
  - Pulmonary congestion [Unknown]
  - Dyspnoea [Unknown]
  - Pulmonary mass [Unknown]
  - Lymphadenopathy [Unknown]
  - Stress [Unknown]
  - Red blood cell count decreased [Unknown]
  - Electrocardiogram abnormal [Unknown]
